FAERS Safety Report 7234525-0 (Version None)
Quarter: 2011Q1

REPORT INFORMATION
  Report Type: 
  Country: None (occurrence: None)
  Receive Date: 20110119
  Receipt Date: 20110110
  Transmission Date: 20110831
  Serious: Yes (Other)
  Sender: FDA-Public Use
  Company Number: BR-GENENTECH-304280

PATIENT
  Sex: Female
  Weight: 57 kg

DRUGS (15)
  1. RITUXIMAB [Suspect]
     Indication: RHEUMATOID ARTHRITIS
     Dosage: 1000 MG, UNK
     Route: 042
     Dates: start: 20080101, end: 20080101
  2. MELOXICAM [Concomitant]
     Indication: PRODUCT USED FOR UNKNOWN INDICATION
     Dosage: 15 MG, PRN
  3. TOCILIZUMAB [Suspect]
     Dosage: 8 MG/KG, 1/WEEK
     Route: 042
     Dates: start: 20101025, end: 20101025
  4. FINASTERIDE [Concomitant]
     Indication: ALOPECIA
  5. TOCILIZUMAB [Suspect]
     Indication: RHEUMATOID ARTHRITIS
     Dosage: 8 MG/KG, 1/WEEK
     Route: 042
     Dates: start: 20100927, end: 20100927
  6. ENBREL [Suspect]
     Dosage: UNK
     Route: 065
  7. CHLOROQUINE [Concomitant]
     Indication: PRODUCT USED FOR UNKNOWN INDICATION
     Dosage: UNK
  8. CALCORT [Concomitant]
  9. HYDROCHLOROTHIAZIDE [Concomitant]
     Indication: PRODUCT USED FOR UNKNOWN INDICATION
     Dosage: UNK
     Dates: start: 20000101
  10. TIBOLONE [Concomitant]
     Indication: PRODUCT USED FOR UNKNOWN INDICATION
  11. TOCILIZUMAB [Suspect]
     Dosage: 8 MG/KG, 1/WEEK
     Route: 042
     Dates: start: 20101222, end: 20101222
  12. TOCILIZUMAB [Suspect]
     Dosage: 8 MG/KG, 1/WEEK
     Route: 042
     Dates: start: 20101122, end: 20101122
  13. ENBREL [Suspect]
     Indication: PRODUCT USED FOR UNKNOWN INDICATION
     Dosage: 50 MG, 1/WEEK
     Route: 065
     Dates: start: 20000101
  14. ARAVA [Concomitant]
     Indication: PRODUCT USED FOR UNKNOWN INDICATION
     Dosage: UNK
  15. CALCORT [Concomitant]
     Indication: PRODUCT USED FOR UNKNOWN INDICATION
     Dosage: 6 MG, QOD

REACTIONS (5)
  - ARTHROPATHY [None]
  - VIRAL INFECTION [None]
  - ARTHRITIS [None]
  - DRUG INEFFECTIVE [None]
  - THERAPEUTIC RESPONSE DECREASED [None]
